FAERS Safety Report 6062118-X (Version None)
Quarter: 2009Q1

REPORT INFORMATION
  Report Type: 
  Country: None (occurrence: None)
  Receive Date: 20090203
  Receipt Date: 20090123
  Transmission Date: 20090719
  Serious: Yes (Hospitalization, Other)
  Sender: FDA-Public Use
  Company Number: IT-BAYER-200912008GPV

PATIENT
  Age: 18 Year
  Sex: Female
  Weight: 45 kg

DRUGS (1)
  1. SORAFENIB [Suspect]
     Indication: BONE SARCOMA
     Route: 048

REACTIONS (1)
  - PNEUMOTHORAX [None]
